FAERS Safety Report 13087677 (Version 1)
Quarter: 2017Q1

REPORT INFORMATION
  Report Type: Spontaneous
  Country: US (occurrence: US)
  Receive Date: 20170105
  Receipt Date: 20170105
  Transmission Date: 20170428
  Serious: No
  Sender: FDA-Public Use
  Company Number: US-BEH-2016076679

PATIENT
  Sex: Female
  Weight: 47.62 kg

DRUGS (34)
  1. ZYRTEC [Concomitant]
     Active Substance: CETIRIZINE HYDROCHLORIDE
     Route: 065
  2. MUCINEX [Concomitant]
     Active Substance: GUAIFENESIN
     Route: 065
  3. KEFLEX [Concomitant]
     Active Substance: CEPHALEXIN
     Route: 065
  4. ACETYLCYSTEINE. [Concomitant]
     Active Substance: ACETYLCYSTEINE
     Route: 065
  5. COENZYME Q10 [Concomitant]
     Active Substance: UBIDECARENONE
     Route: 065
  6. VITAMIN C WITH ROSE HIPS [Concomitant]
     Route: 065
  7. SPIRIVA [Concomitant]
     Active Substance: TIOTROPIUM BROMIDE MONOHYDRATE
     Route: 065
  8. FLONASE [Concomitant]
     Active Substance: FLUTICASONE PROPIONATE
     Route: 065
  9. ZINC. [Concomitant]
     Active Substance: ZINC
     Route: 065
  10. HIZENTRA [Suspect]
     Active Substance: HUMAN IMMUNOGLOBULIN G
     Indication: IMMUNODEFICIENCY COMMON VARIABLE
     Dosage: 5 G, QW
     Route: 058
     Dates: start: 20100830
  11. OXYGEN. [Concomitant]
     Active Substance: OXYGEN
     Route: 065
  12. PRESERVISION [Concomitant]
     Active Substance: MINERALS\VITAMINS
     Route: 065
  13. TUSSIN CF [Concomitant]
     Active Substance: DEXTROMETHORPHAN HYDROBROMIDE\GUAIFENESIN\PHENYLEPHRINE HYDROCHLORIDE
     Route: 065
  14. WELLBUTRIN [Concomitant]
     Active Substance: BUPROPION HYDROCHLORIDE
     Route: 065
  15. SELENIUM [Concomitant]
     Active Substance: SELENIUM
     Route: 065
  16. HIZENTRA [Suspect]
     Active Substance: HUMAN IMMUNOGLOBULIN G
     Dosage: UNK
     Route: 065
  17. PRIMIDONE. [Concomitant]
     Active Substance: PRIMIDONE
     Route: 065
  18. CLONAZEPAM. [Concomitant]
     Active Substance: CLONAZEPAM
     Route: 065
  19. FLUTICASONE. [Concomitant]
     Active Substance: FLUTICASONE
     Route: 065
  20. XOPENEX [Concomitant]
     Active Substance: LEVALBUTEROL HYDROCHLORIDE
     Route: 065
  21. ALPHA LIPOIC [Concomitant]
     Route: 065
  22. MULTIVITAMIN AND MINERAL [Concomitant]
     Route: 065
  23. PRILOSEC [Concomitant]
     Active Substance: OMEPRAZOLE MAGNESIUM
     Route: 065
  24. IBUPROFEN. [Concomitant]
     Active Substance: IBUPROFEN
     Route: 065
  25. ROPINIROLE. [Concomitant]
     Active Substance: ROPINIROLE
     Route: 065
  26. GABAPENTIN. [Concomitant]
     Active Substance: GABAPENTIN
     Route: 065
  27. PREDNISONE. [Concomitant]
     Active Substance: PREDNISONE
     Route: 065
  28. BROVANA [Concomitant]
     Active Substance: ARFORMOTEROL TARTRATE
     Route: 065
  29. CALCIUM [Concomitant]
     Active Substance: CALCIUM
     Route: 065
  30. ASTELIN                            /00085801/ [Concomitant]
     Active Substance: AZELASTINE HYDROCHLORIDE
     Route: 065
  31. HIZENTRA [Suspect]
     Active Substance: HUMAN IMMUNOGLOBULIN G
     Dosage: UNK
     Route: 065
  32. BUPROPION. [Concomitant]
     Active Substance: BUPROPION
     Route: 065
  33. FISH OIL [Concomitant]
     Active Substance: FISH OIL
     Route: 065
  34. BUFFERIN [Concomitant]
     Active Substance: ASPIRIN
     Route: 065

REACTIONS (2)
  - Dyspnoea [Unknown]
  - Gastrointestinal disorder [Unknown]
